FAERS Safety Report 20163307 (Version 3)
Quarter: 2021Q4

REPORT INFORMATION
  Report Type: Other
  Country: US (occurrence: None)
  Receive Date: 20211209
  Receipt Date: 20211227
  Transmission Date: 20220303
  Serious: Yes (Hospitalization)
  Sender: FDA-Public Use
  Company Number: US-ROCHE-2972117

PATIENT
  Age: 64 Year
  Sex: Female

DRUGS (2)
  1. XELODA [Suspect]
     Active Substance: CAPECITABINE
     Indication: Colorectal cancer metastatic
     Dosage: 1500 MG  OF 500 MG TABLET ORAL TWICE A DAY FOR 14 DAYS THAN STOP FOR 7 DAYS
     Route: 048
     Dates: start: 20211118, end: 20211127
  2. XELODA [Suspect]
     Active Substance: CAPECITABINE
     Dosage: TAKE 3 TABLET(S) TWICE A DAY FOR 2 WEEKS. AFTER THAT, DO NOT TAKE THEM FOR 1 WEEK.
     Route: 048

REACTIONS (1)
  - Intestinal obstruction [Recovered/Resolved]

NARRATIVE: CASE EVENT DATE: 20211127
